FAERS Safety Report 5327559-4 (Version None)
Quarter: 2007Q2

REPORT INFORMATION
  Report Type: 
  Country: None (occurrence: None)
  Receive Date: 20070517
  Receipt Date: 20070112
  Transmission Date: 20071010
  Serious: Yes (Hospitalization)
  Sender: FDA-Public Use
  Company Number: US-JNJFOC-20070103212

PATIENT
  Age: 40 Year
  Sex: Male

DRUGS (2)
  1. TRAMADOL IR [Suspect]
     Indication: OVERDOSE
     Route: 048
  2. ETOH [Suspect]
     Indication: OVERDOSE
     Route: 048

REACTIONS (3)
  - OVERDOSE [None]
  - SOMNOLENCE [None]
  - VOMITING [None]
